FAERS Safety Report 8439505-5 (Version None)
Quarter: 2012Q2

REPORT INFORMATION
  Report Type: 
  Country: None (occurrence: None)
  Receive Date: 20120611
  Receipt Date: 20120611
  Transmission Date: 20120825
  Serious: Yes (Hospitalization)
  Sender: FDA-Public Use
  Company Number: None

PATIENT
  Age: 56 Year
  Sex: Female

DRUGS (4)
  1. COGENTIN [Concomitant]
  2. PROLIXIN [Suspect]
     Indication: DELUSION
     Dosage: 50MG EVERY THREE WEEKS IV
     Route: 042
     Dates: start: 20110708
  3. BEANDRYL [Concomitant]
  4. SEROQUEL [Suspect]
     Indication: DELUSION
     Dosage: 300MG ONCE A DAY PO
     Route: 048
     Dates: start: 20110708

REACTIONS (1)
  - DELUSION [None]
